FAERS Safety Report 4891225-X (Version None)
Quarter: 2006Q1

REPORT INFORMATION
  Report Type: 
  Country: None (occurrence: None)
  Receive Date: 20060125
  Receipt Date: 20060103
  Transmission Date: 20060701
  Serious: Yes (Death)
  Sender: FDA-Public Use
  Company Number: JP-GILEAD-2006-0009057

PATIENT
  Sex: Female

DRUGS (8)
  1. HEPSERA [Suspect]
     Indication: HEPATITIS B
     Route: 048
     Dates: start: 20040612
  2. HEPSERA [Suspect]
     Indication: HEPATIC CIRRHOSIS
  3. ZEFFIX [Suspect]
     Indication: HEPATIC CIRRHOSIS
     Route: 048
     Dates: start: 20040401
  4. ZEFFIX [Suspect]
     Route: 048
     Dates: start: 20000101, end: 20030201
  5. FLUCONAZOLE [Concomitant]
  6. LACTULOSE [Concomitant]
  7. SODIUM ALGINATE [Concomitant]
  8. MICONAZOLE NITRATE [Concomitant]

REACTIONS (1)
  - PNEUMONIA [None]
